FAERS Safety Report 26005746 (Version 2)
Quarter: 2025Q4

REPORT INFORMATION
  Report Type: Report from Study
  Country: AU (occurrence: AU)
  Receive Date: 20251106
  Receipt Date: 20251110
  Transmission Date: 20260118
  Serious: Yes (Other)
  Sender: DAIICHI
  Company Number: AU-AstraZeneca-CH-00981775A

PATIENT
  Sex: Female

DRUGS (1)
  1. ENHERTU [Suspect]
     Active Substance: FAM-TRASTUZUMAB DERUXTECAN-NXKI
     Indication: Colorectal cancer metastatic
     Dosage: 4.4 MG, ONCE EVERY 3 WK
     Route: 042

REACTIONS (3)
  - Colon cancer metastatic [Unknown]
  - Large intestine perforation [Unknown]
  - Peritonitis [Unknown]
